FAERS Safety Report 7610932-9 (Version None)
Quarter: 2011Q3

REPORT INFORMATION
  Report Type: 
  Country: None (occurrence: None)
  Receive Date: 20110707
  Receipt Date: 20110624
  Transmission Date: 20111222
  Serious: Yes (Other)
  Sender: FDA-Public Use
  Company Number: PMX02-CH-2011-0011

PATIENT
  Sex: Female

DRUGS (1)
  1. ARIDOL [Suspect]
     Indication: PULMONARY FUNCTION CHALLENGE TEST
     Dosage: 5TH STEP INHALATION
     Route: 055

REACTIONS (2)
  - LOSS OF CONSCIOUSNESS [None]
  - BLOOD GLUCOSE INCREASED [None]
